FAERS Safety Report 9921648 (Version 2)
Quarter: 2014Q1

REPORT INFORMATION
  Report Type: Spontaneous
  Country: US (occurrence: US)
  Receive Date: 20140225
  Receipt Date: 20140326
  Transmission Date: 20141002
  Serious: Yes (Other)
  Sender: FDA-Public Use
  Company Number: US-SA-2014SA022493

PATIENT
  Age: 61 Year
  Sex: Male
  Weight: 98 kg

DRUGS (9)
  1. ZALTRAP [Suspect]
     Indication: COLORECTAL CANCER
     Route: 042
     Dates: start: 20121210, end: 20121210
  2. ZALTRAP [Suspect]
     Indication: COLORECTAL CANCER
     Route: 042
     Dates: start: 20140120, end: 20140120
  3. FLUOROURACIL [Concomitant]
     Indication: COLORECTAL CANCER
     Dosage: DOSE: 690 MG FOLLOWED BY 4150 MG
     Route: 042
     Dates: start: 20121126, end: 20121126
  4. FLUOROURACIL [Concomitant]
     Indication: COLORECTAL CANCER
     Dosage: DOSE: 690 MG FOLLOWED BY 4150 MG
     Route: 042
     Dates: start: 20140120, end: 20140120
  5. IRINOTECAN [Concomitant]
     Indication: COLORECTAL CANCER
     Route: 042
     Dates: start: 20121126, end: 20121126
  6. IRINOTECAN [Concomitant]
     Indication: COLORECTAL CANCER
     Route: 042
     Dates: start: 20140120, end: 20140120
  7. LEUCOVORIN [Concomitant]
     Indication: COLORECTAL CANCER
     Route: 042
     Dates: start: 20121126, end: 20121126
  8. LEUCOVORIN [Concomitant]
     Indication: COLORECTAL CANCER
     Route: 042
     Dates: start: 20140120, end: 20140120
  9. LEVOTHYROXINE [Concomitant]
     Indication: HYPOTHYROIDISM
     Route: 048

REACTIONS (1)
  - Osteonecrosis of jaw [Not Recovered/Not Resolved]
